FAERS Safety Report 24086708 (Version 1)
Quarter: 2024Q3

REPORT INFORMATION
  Report Type: Report from Study
  Country: ZA (occurrence: ZA)
  Receive Date: 20240713
  Receipt Date: 20240713
  Transmission Date: 20241017
  Serious: Yes (Hospitalization)
  Sender: ABBVIE
  Company Number: ZA-ABBOTT-2024A-1384046

PATIENT
  Age: 82 Year
  Sex: Male

DRUGS (10)
  1. FENOFIBRATE [Suspect]
     Active Substance: FENOFIBRATE
     Indication: Blood cholesterol abnormal
     Dosage: 200 MG TAKE ONE CAPSULE DAILY
     Route: 048
  2. ALFUZOSIN HYDROCHLORIDE [Concomitant]
     Active Substance: ALFUZOSIN HYDROCHLORIDE
     Indication: Product used for unknown indication
     Dosage: 10 MG TAKE ONE TABLET DAILY?ALFUWIN XL
     Route: 048
  3. CORYX [Concomitant]
     Indication: Product used for unknown indication
     Dosage: TAKE ONE DISSOLVED IN WATER EIGHT HOURLY
     Route: 048
  4. METFORMIN HYDROCHLORIDE [Concomitant]
     Active Substance: METFORMIN HYDROCHLORIDE
     Indication: Diabetes mellitus
     Dosage: 850 MG TAKE ONE TABLET TWICE A DAY
     Route: 048
  5. THIORIDAZINE [Suspect]
     Active Substance: THIORIDAZINE
     Indication: Vertigo
     Dosage: 24 MG TAKE ONE TABLET TWICE A DAY
     Route: 048
  6. BUDESONIDE [Concomitant]
     Active Substance: BUDESONIDE
     Indication: Rhinitis allergic
     Dosage: 0.5 MG USE 1 NEBB EIGHT HOURLY
     Route: 055
  7. SIMVASTATIN [Concomitant]
     Active Substance: SIMVASTATIN
     Indication: Blood cholesterol abnormal
     Dosage: 10 MG AS DIRECTED
     Route: 048
  8. CLARIHEXAL XL [Concomitant]
     Indication: Product used for unknown indication
     Dosage: 500 MG TAKE ONE TABLET DAILY AFTER MEALS *ANTIBIOTIC*COMPLETE COURSE*
     Route: 048
  9. IVY EXTRACT [Concomitant]
     Active Substance: IVY EXTRACT
     Indication: Product used for unknown indication
     Dosage: 7 MG TAKE TWO MEASURES THREE TIMES A DAY?PROSPAN COUGH
     Route: 048
  10. HYDROCHLOROTHIAZIDE [Concomitant]
     Active Substance: HYDROCHLOROTHIAZIDE
     Indication: Hypertension
     Dosage: 12.5 MG TAKE ONE TABLET DAILY
     Route: 048

REACTIONS (1)
  - Surgery [Unknown]

NARRATIVE: CASE EVENT DATE: 20240620
